FAERS Safety Report 16306239 (Version 1)
Quarter: 2019Q2

REPORT INFORMATION
  Report Type: Other
  Country: US (occurrence: US)
  Receive Date: 20190513
  Receipt Date: 20190513
  Transmission Date: 20190711
  Serious: No
  Sender: FDA-Public Use
  Company Number: US-RARE DISEASE THERAPEUTICS, INC.-2066943

PATIENT
  Sex: Male

DRUGS (2)
  1. ANAVIP [Suspect]
     Active Substance: PIT VIPER (CROTALINAE) IMMUNE GLOBULIN ANTIVENIN (EQUINE)
     Indication: SNAKE BITE
     Route: 042
  2. CROFAB [Concomitant]
     Active Substance: CROTALIDAE POLYVALENT IMMUNE FAB (OVINE)

REACTIONS (1)
  - Myalgia [Recovered/Resolved]
